FAERS Safety Report 14180681 (Version 3)
Quarter: 2018Q1

REPORT INFORMATION
  Report Type: Spontaneous
  Country: US (occurrence: US)
  Receive Date: 20171110
  Receipt Date: 20180208
  Transmission Date: 20180508
  Serious: Yes (Other)
  Sender: FDA-Public Use
  Company Number: US-ALLERGAN-1763736US

PATIENT
  Age: 53 Year
  Sex: Male

DRUGS (2)
  1. TEFLARO [Suspect]
     Active Substance: CEFTAROLINE FOSAMIL
     Indication: PERITONITIS BACTERIAL
     Dosage: 200 MG, BID
     Route: 042
  2. TEFLARO [Suspect]
     Active Substance: CEFTAROLINE FOSAMIL
     Indication: BACTERAEMIA

REACTIONS (1)
  - Peritonitis bacterial [Not Recovered/Not Resolved]
